FAERS Safety Report 22904937 (Version 2)
Quarter: 2023Q4

REPORT INFORMATION
  Report Type: Spontaneous
  Country: US (occurrence: US)
  Receive Date: 20230905
  Receipt Date: 20231128
  Transmission Date: 20240110
  Serious: Yes (Other)
  Sender: FDA-Public Use
  Company Number: US-UCBSA-2023023045

PATIENT
  Age: 57 Year
  Sex: Female
  Weight: 78.912 kg

DRUGS (1)
  1. CIMZIA [Suspect]
     Active Substance: CERTOLIZUMAB PEGOL
     Indication: Psoriasis
     Dosage: 2 SYRINGES 400 MILLIGRAM, EV 2 WEEKS(QOW)
     Route: 058
     Dates: start: 202205

REACTIONS (6)
  - Limb operation [Unknown]
  - Illness [Unknown]
  - COVID-19 [Unknown]
  - Intentional dose omission [Unknown]
  - Product availability issue [Unknown]
  - Therapy interrupted [Unknown]

NARRATIVE: CASE EVENT DATE: 20230503
